FAERS Safety Report 4316563-0 (Version None)
Quarter: 2004Q1

REPORT INFORMATION
  Report Type: 
  Country: None (occurrence: None)
  Receive Date: 20040308
  Receipt Date: 20031110
  Transmission Date: 20041129
  Serious: No
  Sender: FDA-Public Use
  Company Number: PHEH2003US10327

PATIENT
  Age: 38 Year
  Sex: Female

DRUGS (1)
  1. GLEEVEC [Suspect]
     Indication: MASTOCYTOSIS
     Dosage: SEE IMAGE
     Route: 048
     Dates: start: 20010101

REACTIONS (4)
  - BONE PAIN [None]
  - ENZYME ABNORMALITY [None]
  - FATIGUE [None]
  - SKIN DISORDER [None]
